FAERS Safety Report 7628999-0 (Version None)
Quarter: 2011Q3

REPORT INFORMATION
  Report Type: 
  Country: None (occurrence: None)
  Receive Date: 20110715
  Receipt Date: 20110707
  Transmission Date: 20111222
  Serious: Yes (Hospitalization)
  Sender: FDA-Public Use
  Company Number: 2011000828

PATIENT
  Age: 67 Year
  Sex: Male

DRUGS (7)
  1. ERLOTINIB HYDROCHLORIDE [Suspect]
     Indication: NON-SMALL CELL LUNG CANCER
     Dosage: 150 MG, UID/QD, ORAL
     Route: 048
     Dates: start: 20110212, end: 20110221
  2. DOCETAXEL [Suspect]
     Indication: NON-SMALL CELL LUNG CANCER
     Dosage: 75 MG/M2, Q3W, IV NOS
     Route: 042
     Dates: start: 20110211, end: 20110221
  3. ATENOLOL [Concomitant]
  4. DEFLAMON (METRONIDAZOLE) [Concomitant]
  5. GRANULOKINE [Concomitant]
  6. METHYLPREDNISOLONE [Concomitant]
  7. PHENOBARBITAL TAB [Concomitant]

REACTIONS (1)
  - FEBRILE NEUTROPENIA [None]
